FAERS Safety Report 7359107-1 (Version None)
Quarter: 2011Q1

REPORT INFORMATION
  Report Type: 
  Country: None (occurrence: None)
  Receive Date: 20110317
  Receipt Date: 20110309
  Transmission Date: 20110831
  Serious: Yes (Other)
  Sender: FDA-Public Use
  Company Number: ES-AMGEN-ESPSP2011001611

PATIENT
  Age: 77 Year
  Sex: Female

DRUGS (2)
  1. ARANESP [Suspect]
     Indication: LIVER TRANSPLANT
     Dosage: 200 A?G, QWK
  2. ARANESP [Suspect]
     Indication: RENAL FAILURE CHRONIC
     Dosage: 150 A?G, QWK

REACTIONS (2)
  - MYELODYSPLASTIC SYNDROME [None]
  - APLASIA PURE RED CELL [None]
